FAERS Safety Report 5036870-6 (Version None)
Quarter: 2006Q2

REPORT INFORMATION
  Report Type: 
  Country: None (occurrence: None)
  Receive Date: 20060628
  Receipt Date: 20060623
  Transmission Date: 20061013
  Serious: Yes (Hospitalization)
  Sender: FDA-Public Use
  Company Number: CO-JNJFOC-20060605310

PATIENT
  Age: 65 Year
  Sex: Male

DRUGS (1)
  1. SPORANOX [Suspect]
     Indication: CANDIDIASIS
     Route: 042

REACTIONS (2)
  - CARDIAC FAILURE [None]
  - SEPSIS [None]
